FAERS Safety Report 18476762 (Version 1)
Quarter: 2020Q4

REPORT INFORMATION
  Report Type: Spontaneous
  Country: IE (occurrence: IE)
  Receive Date: 20201107
  Receipt Date: 20201107
  Transmission Date: 20210114
  Serious: Yes (Other)
  Sender: FDA-Public Use
  Company Number: IE-ACCORD-207464

PATIENT
  Age: 37 Year
  Sex: Female

DRUGS (4)
  1. ONDANSETRON [Suspect]
     Active Substance: ONDANSETRON
     Indication: PRODUCT USED FOR UNKNOWN INDICATION
     Dosage: AT 08:10 4MG
     Dates: start: 20201014
  2. DIAZEPAM. [Suspect]
     Active Substance: DIAZEPAM
     Indication: PRODUCT USED FOR UNKNOWN INDICATION
     Dosage: AT 08:10 5MG ADMINISTERED, AT 08:13 REMAINING 5MG ADMINISTERED
     Dates: start: 20201014
  3. PETHIDINE/PETHIDINE HYDROCHLORIDE [Suspect]
     Active Substance: MEPERIDINE HYDROCHLORIDE
     Indication: PRODUCT USED FOR UNKNOWN INDICATION
     Dosage: AT 08:10 50MG ADMINISTERED, AT 08:13 REMAINING 50MG ADMINISTERED
  4. SODIUM CHLORIDE. [Suspect]
     Active Substance: SODIUM CHLORIDE
     Indication: PRODUCT USED FOR UNKNOWN INDICATION
     Dosage: AT 08:10 IV FLUIDS NACL 250MLS INFUSING, AT 08:40 IVF 250MLS FINISHED
     Route: 042

REACTIONS (9)
  - Extremity contracture [Recovered/Resolved]
  - Unresponsive to stimuli [Recovered/Resolved]
  - Pulse absent [Recovered/Resolved]
  - Pallor [Recovered/Resolved]
  - Coma scale abnormal [Recovered/Resolved]
  - Snoring [Recovered/Resolved]
  - Fatigue [Recovered/Resolved]
  - Lip dry [Recovered/Resolved]
  - Moaning [Recovered/Resolved]

NARRATIVE: CASE EVENT DATE: 20201014
